FAERS Safety Report 5668528-4 (Version None)
Quarter: 2008Q1

REPORT INFORMATION
  Report Type: 
  Country: None (occurrence: None)
  Receive Date: 20080312
  Receipt Date: 20080305
  Transmission Date: 20080703
  Serious: Yes (Other)
  Sender: FDA-Public Use
  Company Number: 163-20785-08030274

PATIENT
  Age: 48 Year
  Sex: Female

DRUGS (3)
  1. THALOMID [Suspect]
     Indication: MULTIPLE MYELOMA
     Dosage: 150 MG, DAILY; ORAL, 100 MG, DAILY; ORAL
     Route: 048
     Dates: start: 20080110
  2. THALOMID [Suspect]
     Indication: MULTIPLE MYELOMA
     Dosage: 150 MG, DAILY; ORAL, 100 MG, DAILY; ORAL
     Route: 048
     Dates: start: 20080201
  3. THALOMID [Suspect]
     Indication: MULTIPLE MYELOMA
     Dosage: 150 MG, DAILY; ORAL, 100 MG, DAILY; ORAL
     Route: 048
     Dates: start: 20080301

REACTIONS (2)
  - BLOOD HUMAN CHORIONIC GONADOTROPIN INCREASED [None]
  - PREGNANCY TEST FALSE POSITIVE [None]
